FAERS Safety Report 5940258-0 (Version None)
Quarter: 2008Q4

REPORT INFORMATION
  Report Type: 
  Country: None (occurrence: None)
  Receive Date: 20081030
  Receipt Date: 20081022
  Transmission Date: 20090506
  Serious: Yes (Other)
  Sender: FDA-Public Use
  Company Number: 035913

PATIENT
  Age: 53 Year
  Sex: Male

DRUGS (4)
  1. THEOPHYLLINE [Suspect]
     Indication: ASTHMA
     Dosage: INTRAVENOUS
     Route: 042
  2. SALBUTAMOL (SALBUTAMOL) [Concomitant]
  3. IPRATROPIUM BROMIDE [Concomitant]
  4. NIFEDIPINE [Concomitant]

REACTIONS (2)
  - DRUG TOXICITY [None]
  - STATUS EPILEPTICUS [None]
